FAERS Safety Report 7456647-1 (Version None)
Quarter: 2011Q2

REPORT INFORMATION
  Report Type: 
  Country: None (occurrence: None)
  Receive Date: 20110503
  Receipt Date: 20110428
  Transmission Date: 20111010
  Serious: Yes (Death)
  Sender: FDA-Public Use
  Company Number: US-AMGEN-USASP2011017655

PATIENT
  Sex: Female
  Weight: 63 kg

DRUGS (5)
  1. ETOPOSIDE [Concomitant]
     Dosage: UNK
     Route: 042
     Dates: start: 20100215, end: 20100504
  2. CISPLATIN [Concomitant]
     Dosage: UNK
     Route: 042
     Dates: start: 20100215, end: 20100511
  3. NEUPOGEN [Suspect]
     Indication: CHEMOTHERAPY
     Dosage: 480 A?G, QD
     Route: 058
     Dates: start: 20100330, end: 20100402
  4. TOPOTECAN [Concomitant]
     Dosage: UNK
     Route: 042
     Dates: start: 20101129, end: 20101215
  5. NEULASTA [Suspect]
     Indication: CHEMOTHERAPY
     Dosage: 6 MG, ONE TIME DOSE
     Route: 058
     Dates: start: 20100420, end: 20100420

REACTIONS (1)
  - SMALL CELL LUNG CANCER METASTATIC [None]
